FAERS Safety Report 26114577 (Version 1)
Quarter: 2025Q4

REPORT INFORMATION
  Report Type: Other
  Country: CN (occurrence: CN)
  Receive Date: 20251202
  Receipt Date: 20251202
  Transmission Date: 20260118
  Serious: Yes (Hospitalization, Other)
  Sender: QILU PHARMACEUTICAL (HAINAN) CO., LTD.
  Company Number: CN-QILU PHARMACEUTICAL (HAINAN) CO.  LTD.-QLH-000394-2025

PATIENT
  Age: 67 Year
  Sex: Female
  Weight: 50 kg

DRUGS (5)
  1. OXALIPLATIN [Suspect]
     Active Substance: OXALIPLATIN
     Indication: Gastric cancer
     Dosage: 180 MG PER DAY ON DAY 1
     Route: 041
     Dates: start: 20250920, end: 20250920
  2. CAPECITABINE [Suspect]
     Active Substance: CAPECITABINE
     Indication: Gastric cancer
     Dosage: 1000 MG IN THE MORNING AND 1500 MG IN THE EVENING ON DAY 1 TO14
     Route: 048
     Dates: start: 20250920, end: 20250920
  3. SINTILIMAB [Suspect]
     Active Substance: SINTILIMAB
     Indication: Gastric cancer
     Dosage: 180 MG PER DAY ON DAY 1
     Route: 041
     Dates: start: 20250920, end: 20250920
  4. DEXTROSE [Concomitant]
     Active Substance: DEXTROSE MONOHYDRATE
     Indication: Infusion
     Dosage: 480 ML PER DAY
     Route: 041
     Dates: start: 20250920, end: 20250920
  5. SODIUM CHLORIDE [Concomitant]
     Active Substance: SODIUM CHLORIDE
     Indication: Infusion
     Dosage: 60 ML PER DAY
     Route: 041
     Dates: start: 20250920, end: 20250920

REACTIONS (2)
  - Immune-mediated myocarditis [Recovered/Resolved]
  - Off label use [Unknown]

NARRATIVE: CASE EVENT DATE: 20250920
